FAERS Safety Report 4390725-9 (Version None)
Quarter: 2004Q2

REPORT INFORMATION
  Report Type: 
  Country: None (occurrence: None)
  Receive Date: 20040630
  Receipt Date: 20040618
  Transmission Date: 20050107
  Serious: Yes (Other)
  Sender: FDA-Public Use
  Company Number: S04-USA-03273-01

PATIENT
  Sex: Male

DRUGS (1)
  1. LEXAPRO [Suspect]
     Dates: start: 20040604

REACTIONS (3)
  - ALTERED VISUAL DEPTH PERCEPTION [None]
  - DEPRESSED LEVEL OF CONSCIOUSNESS [None]
  - ROAD TRAFFIC ACCIDENT [None]
